FAERS Safety Report 4961426-0 (Version None)
Quarter: 2006Q1

REPORT INFORMATION
  Report Type: 
  Country: None (occurrence: None)
  Receive Date: 20060329
  Receipt Date: 20060316
  Transmission Date: 20060701
  Serious: Yes (Hospitalization)
  Sender: FDA-Public Use
  Company Number: GXKR2006IT01674

PATIENT
  Age: 76 Year
  Sex: Male

DRUGS (4)
  1. CEFTRIAXONE [Suspect]
     Indication: CHRONIC OBSTRUCTIVE PULMONARY DISEASE
     Dosage: 1000 MG, INTRAMUSCULAR
     Route: 030
  2. DIGITALIS (DIGITALIS PURPUREA) [Concomitant]
  3. DIURETICS (NO INGREDIENTS/SUBSTANCES) [Concomitant]
  4. PLATELET AGGREGATIONINHIBITORS (NO INGREDIENTS/SUBSTANCES) [Concomitant]

REACTIONS (2)
  - DYSPNOEA [None]
  - URTICARIA [None]
